FAERS Safety Report 4399849-3 (Version None)
Quarter: 2004Q3

REPORT INFORMATION
  Report Type: 
  Country: None (occurrence: None)
  Receive Date: 20040714
  Receipt Date: 20040630
  Transmission Date: 20050211
  Serious: Yes (Life-Threatening, Hospitalization)
  Sender: FDA-Public Use
  Company Number: RENA-11036

PATIENT
  Age: 67 Year
  Sex: Female
  Weight: 46.2 kg

DRUGS (6)
  1. RENAGEL [Suspect]
     Indication: HYPERPHOSPHATAEMIA
     Dosage: 0.5 G TID PO
     Route: 048
     Dates: start: 20040401, end: 20040430
  2. ASPIRIN [Concomitant]
  3. LEVOGLUTAMIDE [Concomitant]
  4. ZOLPIDEM TARTRATE [Concomitant]
  5. MAXACALCITOL [Concomitant]
  6. SENNOSIDE [Concomitant]

REACTIONS (4)
  - CHILLS [None]
  - CONSTIPATION [None]
  - LARGE INTESTINE PERFORATION [None]
  - PYREXIA [None]
